FAERS Safety Report 18189413 (Version 1)
Quarter: 2020Q3

REPORT INFORMATION
  Report Type: Spontaneous
  Country: US (occurrence: US)
  Receive Date: 20200824
  Receipt Date: 20200824
  Transmission Date: 20201103
  Serious: No
  Sender: FDA-Public Use
  Company Number: US-AMGEN-USASP2020136171

PATIENT
  Age: 61 Year
  Sex: Female

DRUGS (2)
  1. CORLANOR [Suspect]
     Active Substance: IVABRADINE HYDROCHLORIDE
     Indication: HEART RATE INCREASED
     Dosage: UNK UNK, BID
     Route: 065
  2. REPATHA [Concomitant]
     Active Substance: EVOLOCUMAB
     Indication: CARDIAC DISORDER
     Dosage: UNK UNK, Q2MO
     Route: 065

REACTIONS (1)
  - Off label use [Unknown]
